FAERS Safety Report 25899500 (Version 1)
Quarter: 2025Q4

REPORT INFORMATION
  Report Type: Spontaneous
  Country: US (occurrence: US)
  Receive Date: 20251009
  Receipt Date: 20251009
  Transmission Date: 20260118
  Serious: Yes (Hospitalization)
  Sender: ELI LILLY AND COMPANY
  Company Number: US-ELI_LILLY_AND_COMPANY-US202510007813

PATIENT
  Age: 66 Year

DRUGS (3)
  1. TRULICITY [Suspect]
     Active Substance: DULAGLUTIDE
     Indication: Type 2 diabetes mellitus
     Dosage: UNK UNK, UNKNOWN
     Route: 065
     Dates: start: 202009, end: 202406
  2. TRULICITY [Suspect]
     Active Substance: DULAGLUTIDE
     Indication: Disease risk factor
  3. TRULICITY [Suspect]
     Active Substance: DULAGLUTIDE
     Indication: Weight control

REACTIONS (4)
  - Impaired gastric emptying [Unknown]
  - Constipation [Unknown]
  - Vomiting [Unknown]
  - Abdominal pain [Unknown]
